FAERS Safety Report 5153815-9 (Version None)
Quarter: 2006Q4

REPORT INFORMATION
  Report Type: 
  Country: None (occurrence: None)
  Receive Date: 20061120
  Receipt Date: 20061107
  Transmission Date: 20070319
  Serious: Yes (Hospitalization)
  Sender: FDA-Public Use
  Company Number: US-JNJFOC-20060900270

PATIENT
  Sex: Male
  Weight: 72.58 kg

DRUGS (2)
  1. VIADUR [Suspect]
     Indication: PROSTATE CANCER
     Route: 058
  2. MANY UNKNOWN MEDICATIONS [Concomitant]

REACTIONS (8)
  - CHOLECYSTECTOMY [None]
  - DEHYDRATION [None]
  - HOT FLUSH [None]
  - NAUSEA [None]
  - NEPHROLITHIASIS [None]
  - RENAL FAILURE [None]
  - VOMITING [None]
  - WEIGHT DECREASED [None]
